FAERS Safety Report 8226156 (Version 4)
Quarter: 2013Q3

REPORT INFORMATION
  Report Type: Spontaneous
  Country: US (occurrence: US)
  Receive Date: 20111103
  Receipt Date: 20130703
  Transmission Date: 20140515
  Serious: Yes (Hospitalization)
  Sender: FDA-Public Use
  Company Number: US-GLAXOSMITHKLINE-A0942036A

PATIENT
  Age: 71 Year
  Sex: Male

DRUGS (1)
  1. AVANDIA [Suspect]
     Indication: TYPE 2 DIABETES MELLITUS
     Route: 048
     Dates: start: 20030313, end: 200708

REACTIONS (8)
  - Cardiac failure congestive [Not Recovered/Not Resolved]
  - Mitral valve incompetence [Unknown]
  - Cardiomyopathy [Unknown]
  - Atrial fibrillation [Unknown]
  - Cardiac assistance device user [Unknown]
  - Catheterisation cardiac [Unknown]
  - Implantable defibrillator insertion [Unknown]
  - Cerebrovascular accident [Unknown]
